FAERS Safety Report 4700016-1 (Version None)
Quarter: 2005Q2

REPORT INFORMATION
  Report Type: 
  Country: None (occurrence: None)
  Receive Date: 20050623
  Receipt Date: 20050609
  Transmission Date: 20051028
  Serious: Yes (Hospitalization, Other)
  Sender: FDA-Public Use
  Company Number: 200314144BCC

PATIENT
  Age: 81 Year
  Sex: Female

DRUGS (10)
  1. ALEVE [Suspect]
     Indication: DEMENTIA ALZHEIMER'S TYPE
     Dosage: BID,ORAL
     Route: 048
     Dates: end: 20030714
  2. LORAZEPAM [Concomitant]
     Indication: PROPHYLAXIS
  3. ALENDRONATE [Concomitant]
  4. NAPROXEN [Concomitant]
  5. ASPIRIN [Concomitant]
  6. CITRACAL [Concomitant]
  7. VITAMIN E [Concomitant]
  8. MULTI-VITAMINS [Concomitant]
  9. TYLENOL [Concomitant]
  10. IBUPROFEN [Concomitant]

REACTIONS (2)
  - SPEECH DISORDER [None]
  - TRANSIENT ISCHAEMIC ATTACK [None]
